FAERS Safety Report 19899793 (Version 1)
Quarter: 2021Q3

REPORT INFORMATION
  Report Type: Spontaneous
  Country: US (occurrence: US)
  Receive Date: 20210930
  Receipt Date: 20210930
  Transmission Date: 20211014
  Serious: No
  Sender: FDA-Public Use
  Company Number: None

PATIENT
  Age: 27 Year
  Sex: Female
  Weight: 40.5 kg

DRUGS (2)
  1. PROAIR INHALER [Concomitant]
     Active Substance: ALBUTEROL SULFATE
  2. ELLAONE [Suspect]
     Active Substance: ULIPRISTAL ACETATE
     Indication: POST COITAL CONTRACEPTION
     Dosage: ?          QUANTITY:1 CAPSULE(S);?
     Route: 048
     Dates: start: 20210928, end: 20210928

REACTIONS (6)
  - Vomiting [None]
  - Abdominal pain [None]
  - Sleep deficit [None]
  - Diarrhoea [None]
  - Dyschezia [None]
  - Nausea [None]

NARRATIVE: CASE EVENT DATE: 20210929
